FAERS Safety Report 5939187-8 (Version None)
Quarter: 2008Q4

REPORT INFORMATION
  Report Type: 
  Country: None (occurrence: None)
  Receive Date: 20081103
  Receipt Date: 20081029
  Transmission Date: 20090506
  Serious: Yes (Hospitalization)
  Sender: FDA-Public Use
  Company Number: US-ASTRAZENECA-2008UW24290

PATIENT
  Age: 86 Year
  Sex: Female

DRUGS (10)
  1. SYMBICORT [Suspect]
     Dosage: 160/4.5 2 PUFFS BID
     Route: 055
     Dates: start: 20080630
  2. SPIRIVA [Concomitant]
  3. NORVASC [Concomitant]
  4. SINGULAIR [Concomitant]
  5. TRICOR [Concomitant]
  6. MUCINEX [Concomitant]
  7. FOSAMAX [Concomitant]
  8. ASPIRIN [Concomitant]
  9. VITAMINS [Concomitant]
  10. CALCIUM [Concomitant]

REACTIONS (1)
  - RETINAL DETACHMENT [None]
